FAERS Safety Report 20854825 (Version 2)
Quarter: 2022Q2

REPORT INFORMATION
  Report Type: Spontaneous
  Country: JP (occurrence: JP)
  Receive Date: 20220520
  Receipt Date: 20220607
  Transmission Date: 20220721
  Serious: No
  Sender: FDA-Public Use
  Company Number: JP-DSJP-DSJ-2021-134950

PATIENT

DRUGS (2)
  1. ENHERTU [Suspect]
     Active Substance: FAM-TRASTUZUMAB DERUXTECAN-NXKI
     Indication: HER2 positive breast cancer
     Dosage: 3.2 MG/KG, ONCE EVERY 3 WK
     Route: 041
     Dates: start: 20210726
  2. APREPITANT [Concomitant]
     Active Substance: APREPITANT
     Indication: Nausea
     Dosage: UNK
     Route: 065

REACTIONS (5)
  - Neutrophil count decreased [Unknown]
  - Nausea [Unknown]
  - Tumour marker increased [Unknown]
  - Disease progression [Unknown]
  - Underdose [Unknown]

NARRATIVE: CASE EVENT DATE: 20210726
